FAERS Safety Report 14353697 (Version 1)
Quarter: 2018Q1

REPORT INFORMATION
  Report Type: Spontaneous
  Country: GB (occurrence: GB)
  Receive Date: 20180105
  Receipt Date: 20180105
  Transmission Date: 20180509
  Serious: Yes (Hospitalization)
  Sender: FDA-Public Use
  Company Number: GB-AXELLIA-001235

PATIENT
  Age: 47 Year
  Sex: Female
  Weight: 79.3 kg

DRUGS (19)
  1. HUMULIN M3 [Concomitant]
     Active Substance: INSULIN HUMAN
  2. LITHIUM. [Concomitant]
     Active Substance: LITHIUM
  3. VANCOMYCIN [Suspect]
     Active Substance: VANCOMYCIN
     Indication: STAPHYLOCOCCAL BACTERAEMIA
     Route: 042
     Dates: start: 20171106, end: 20171110
  4. MORPHINE [Concomitant]
     Active Substance: MORPHINE
  5. SULFAMETHOXAZOLE/TRIMETHOPRIM [Concomitant]
  6. PREGABALIN. [Concomitant]
     Active Substance: PREGABALIN
  7. MIRTAZAPINE. [Concomitant]
     Active Substance: MIRTAZAPINE
  8. GENTAMICIN. [Concomitant]
     Active Substance: GENTAMICIN
  9. PARACETAMOL [Concomitant]
     Active Substance: ACETAMINOPHEN
  10. DIHYDROCODEINE [Concomitant]
     Active Substance: DIHYDROCODEINE
  11. CYCLIZINE [Concomitant]
     Active Substance: CYCLIZINE
  12. METRONIDAZOLE. [Concomitant]
     Active Substance: METRONIDAZOLE
  13. QUETIAPINE/QUETIAPINE FUMARATE [Concomitant]
  14. DALTEPARIN [Concomitant]
     Active Substance: DALTEPARIN
  15. ZOPICLONE [Concomitant]
     Active Substance: ZOPICLONE
  16. AZTREONAM. [Concomitant]
     Active Substance: AZTREONAM
  17. SIMVASTATIN. [Concomitant]
     Active Substance: SIMVASTATIN
  18. CASSIA [Concomitant]
  19. LACTULOSE. [Concomitant]
     Active Substance: LACTULOSE

REACTIONS (2)
  - Blister [Recovering/Resolving]
  - Oedema [Recovering/Resolving]

NARRATIVE: CASE EVENT DATE: 20171110
